FAERS Safety Report 20426581 (Version 1)
Quarter: 2022Q1

REPORT INFORMATION
  Report Type: Report from Study
  Country: US (occurrence: US)
  Receive Date: 20220204
  Receipt Date: 20220204
  Transmission Date: 20220424
  Serious: No
  Sender: FDA-Public Use
  Company Number: US-EXELIXIS-CABO-21044912

PATIENT
  Age: 40 Year
  Sex: Female

DRUGS (4)
  1. CABOMETYX [Suspect]
     Active Substance: CABOZANTINIB S-MALATE
     Indication: Renal cell carcinoma
     Dosage: 40 MG, QD
     Dates: start: 20210915
  2. CABOMETYX [Suspect]
     Active Substance: CABOZANTINIB S-MALATE
     Dosage: 40 MG, QD
  3. CABOMETYX [Suspect]
     Active Substance: CABOZANTINIB S-MALATE
     Dosage: 40 MG, QD
  4. UNSPECIFIED INGREDIENT [Suspect]
     Active Substance: UNSPECIFIED INGREDIENT
     Indication: Renal cell carcinoma
     Dosage: UNK Q3WEEKS
     Dates: start: 20210915

REACTIONS (10)
  - Pyrexia [Unknown]
  - Pain in jaw [Unknown]
  - Tongue discomfort [Unknown]
  - Throat irritation [Unknown]
  - Oral pain [Unknown]
  - Muscle spasms [Unknown]
  - Vomiting [Unknown]
  - Blood potassium decreased [Unknown]
  - Tumour pain [Unknown]
  - Product dose omission issue [Unknown]

NARRATIVE: CASE EVENT DATE: 20211117
